FAERS Safety Report 9522766 (Version 2)
Quarter: 2013Q3

REPORT INFORMATION
  Report Type: Spontaneous
  Country: BR (occurrence: BR)
  Receive Date: 20130913
  Receipt Date: 20130913
  Transmission Date: 20140515
  Serious: Yes (Hospitalization)
  Sender: FDA-Public Use
  Company Number: BR-B.I. PHARMACEUTICALS,INC./RIDGEFIELD-2013-BR-00970BR

PATIENT
  Age: 84 Year
  Sex: Male

DRUGS (4)
  1. PRADAXA [Suspect]
     Indication: ATRIAL FIBRILLATION
     Dosage: 220 MG
     Route: 048
  2. BETA BLOCKER [Concomitant]
     Indication: HYPERTENSION
  3. DIURETICS [Concomitant]
     Indication: HYPERTENSION
  4. MONOCORDIL [Concomitant]
     Indication: CARDIAC FAILURE

REACTIONS (3)
  - Gastric haemorrhage [Recovered/Resolved]
  - Haematuria [Recovered/Resolved]
  - Renal failure [Recovered/Resolved]
